FAERS Safety Report 24135124 (Version 1)
Quarter: 2024Q3

REPORT INFORMATION
  Report Type: Spontaneous
  Country: US (occurrence: US)
  Receive Date: 20240725
  Receipt Date: 20240725
  Transmission Date: 20241017
  Serious: Yes (Other)
  Sender: JOHNSON AND JOHNSON
  Company Number: US-JNJFOC-20240743622

PATIENT

DRUGS (1)
  1. RYBREVANT [Suspect]
     Active Substance: AMIVANTAMAB-VMJW
     Indication: Product used for unknown indication
     Route: 042

REACTIONS (5)
  - Alopecia [Recovering/Resolving]
  - Rash [Recovering/Resolving]
  - Dry eye [Recovering/Resolving]
  - Paronychia [Recovering/Resolving]
  - Rash [Recovering/Resolving]
